FAERS Safety Report 20071832 (Version 1)
Quarter: 2021Q4

REPORT INFORMATION
  Report Type: Spontaneous
  Country: US (occurrence: US)
  Receive Date: 20211116
  Receipt Date: 20211116
  Transmission Date: 20220304
  Serious: Yes (Other)
  Sender: FDA-Public Use
  Company Number: US-SA-SAC20211109000869

PATIENT
  Age: 58 Year
  Sex: Female

DRUGS (1)
  1. ZANTAC [Suspect]
     Active Substance: RANITIDINE HYDROCHLORIDE
     Dosage: UNK, FREQUENCY: OCCASIONAL
     Dates: start: 199101, end: 201801

REACTIONS (4)
  - Breast cancer stage I [Unknown]
  - Oesophageal carcinoma [Unknown]
  - Pharyngeal cancer stage IV [Unknown]
  - Malignant palate neoplasm [Unknown]

NARRATIVE: CASE EVENT DATE: 20110101
